FAERS Safety Report 7850296-9 (Version None)
Quarter: 2011Q4

REPORT INFORMATION
  Report Type: 
  Country: None (occurrence: None)
  Receive Date: 20111026
  Receipt Date: 20111017
  Transmission Date: 20120403
  Serious: Yes (Hospitalization)
  Sender: FDA-Public Use
  Company Number: US-ASTRAZENECA-2011SE51010

PATIENT
  Age: 58 Year
  Sex: Female
  Weight: 55.8 kg

DRUGS (6)
  1. SEROQUEL [Suspect]
     Indication: NEUROTRANSMITTER LEVEL ALTERED
     Route: 048
  2. DOXEPIN [Concomitant]
     Indication: NEUROTRANSMITTER LEVEL ALTERED
  3. NEXIUM [Suspect]
     Indication: GASTROOESOPHAGEAL REFLUX DISEASE
     Route: 048
  4. NAMICTIL [Concomitant]
     Indication: NEUROTRANSMITTER LEVEL ALTERED
  5. SEROQUEL [Suspect]
     Indication: SLEEP DISORDER
     Route: 048
  6. EFFEXOR [Concomitant]
     Indication: NEUROTRANSMITTER LEVEL ALTERED

REACTIONS (7)
  - SPEECH DISORDER [None]
  - BALANCE DISORDER [None]
  - MENTAL DISORDER [None]
  - DRUG DOSE OMISSION [None]
  - GAIT DISTURBANCE [None]
  - GASTRIC ULCER [None]
  - OFF LABEL USE [None]
